FAERS Safety Report 7466985-4 (Version None)
Quarter: 2011Q2

REPORT INFORMATION
  Report Type: 
  Country: None (occurrence: None)
  Receive Date: 20110509
  Receipt Date: 20110425
  Transmission Date: 20111010
  Serious: Yes (Life-Threatening, Hospitalization)
  Sender: FDA-Public Use
  Company Number: US-BAYER-201015700NA

PATIENT
  Age: 37 Year
  Sex: Female
  Weight: 106.58 kg

DRUGS (9)
  1. ZOFRAN [Concomitant]
     Dosage: UNK
     Dates: start: 20080117
  2. VICODIN [Concomitant]
  3. AUGMENTIN [Concomitant]
  4. MORPHINE [Concomitant]
     Dosage: UNK
     Dates: start: 20080117
  5. AVELOX [Concomitant]
  6. YASMIN [Suspect]
     Indication: CONTRACEPTION
     Dates: start: 20051201, end: 20080601
  7. CELEBREX [Concomitant]
  8. OMEPRAZOLE [Concomitant]
     Dosage: UNK
     Dates: start: 20080117
  9. YASMIN [Suspect]
     Indication: MENSTRUATION IRREGULAR

REACTIONS (5)
  - ORGAN FAILURE [None]
  - GALLBLADDER NON-FUNCTIONING [None]
  - GALLBLADDER CHOLESTEROLOSIS [None]
  - CHOLECYSTITIS CHRONIC [None]
  - CHOLELITHIASIS [None]
